FAERS Safety Report 8991436 (Version 2)
Quarter: 2013Q2

REPORT INFORMATION
  Report Type: Report from Study
  Country: JP (occurrence: JP)
  Receive Date: 20121229
  Receipt Date: 20130411
  Transmission Date: 20140414
  Serious: Yes (Death)
  Sender: FDA-Public Use
  Company Number: JP-009507513-1212JPN010974

PATIENT
  Sex: Male
  Weight: 44 kg

DRUGS (7)
  1. TEMODAL [Suspect]
     Indication: ANAPLASTIC ASTROCYTOMA
     Dosage: 75 MG/M2, QD
     Route: 048
     Dates: start: 20120110, end: 20120214
  2. TEMODAL [Suspect]
     Dosage: 75 MG/M2, QD
     Route: 048
     Dates: start: 20120228, end: 20120303
  3. TEMODAL [Suspect]
     Dosage: 150 MG/M2, QD
     Route: 048
     Dates: start: 20120423, end: 20120427
  4. TEMODAL [Suspect]
     Dosage: 200 MG/M2, QD
     Route: 048
     Dates: start: 20120521, end: 20120525
  5. TEMODAL [Suspect]
     Dosage: 200 MG/M2, QD
     Route: 048
     Dates: start: 20120618, end: 20120622
  6. TEMODAL [Suspect]
     Dosage: 200 MG/M2, QD
     Route: 048
     Dates: start: 20120717, end: 20120717
  7. NASEA [Concomitant]
     Indication: PROPHYLAXIS
     Dosage: DAILY DOSE UNKNOWN
     Route: 048
     Dates: start: 20120110, end: 20120717

REACTIONS (2)
  - Hepatic function abnormal [Recovering/Resolving]
  - Disease progression [Fatal]
